FAERS Safety Report 5809369-4 (Version None)
Quarter: 2008Q3

REPORT INFORMATION
  Report Type: 
  Country: None (occurrence: None)
  Receive Date: 20080714
  Receipt Date: 20080709
  Transmission Date: 20090109
  Serious: Yes (Death, Hospitalization)
  Sender: FDA-Public Use
  Company Number: PHHY2008FR08617

PATIENT
  Sex: Female

DRUGS (3)
  1. VOLTAREN [Suspect]
     Indication: BACK PAIN
     Dosage: UNK
     Route: 030
     Dates: start: 20080403, end: 20080405
  2. RAMIPRIL [Interacting]
     Indication: HYPERTENSION
     Route: 048
  3. LASIX [Concomitant]
     Indication: HYPERTENSION
     Dosage: 20 MG, UNK

REACTIONS (18)
  - ANURIA [None]
  - BLOOD PRESSURE DECREASED [None]
  - CHEST X-RAY ABNORMAL [None]
  - CONFUSIONAL STATE [None]
  - DEHYDRATION [None]
  - DRUG INTERACTION [None]
  - GENERAL PHYSICAL HEALTH DETERIORATION [None]
  - HEART RATE INCREASED [None]
  - HYPOTENSION [None]
  - LUNG DISORDER [None]
  - LUNG INFECTION [None]
  - OEDEMA PERIPHERAL [None]
  - OLIGURIA [None]
  - RENAL FAILURE ACUTE [None]
  - RENAL TUBULAR NECROSIS [None]
  - RESPIRATORY DISTRESS [None]
  - STAPHYLOCOCCAL INFECTION [None]
  - TONGUE DISORDER [None]
